FAERS Safety Report 7197369-4 (Version None)
Quarter: 2010Q4

REPORT INFORMATION
  Report Type: 
  Country: None (occurrence: None)
  Receive Date: 20101213
  Receipt Date: 20101206
  Transmission Date: 20110411
  Serious: Yes (Hospitalization)
  Sender: FDA-Public Use
  Company Number: 2010SP041884

PATIENT
  Age: 74 Year
  Sex: Female

DRUGS (3)
  1. MIRTAZAPINE [Suspect]
     Indication: DEPRESSION
     Dosage: 1320 MG;ONCE;PO
     Route: 048
     Dates: start: 20100707, end: 20100707
  2. ACETAMINOPHEN [Concomitant]
  3. PROFENID [Concomitant]

REACTIONS (2)
  - COMA [None]
  - OVERDOSE [None]
